FAERS Safety Report 5129492-X (Version None)
Quarter: 2006Q4

REPORT INFORMATION
  Report Type: 
  Country: None (occurrence: None)
  Receive Date: 20061012
  Receipt Date: 20060928
  Transmission Date: 20070319
  Serious: Yes (Other)
  Sender: FDA-Public Use
  Company Number: 3271

PATIENT
  Age: 16 Year
  Sex: Male

DRUGS (5)
  1. AMNESTEEM [Suspect]
     Indication: ACNE CYSTIC
     Dosage: 20 MG, BID, PO
     Route: 048
     Dates: start: 20060801, end: 20060801
  2. FLUOXETINE HYDROCHLORIDE [Concomitant]
  3. MIRTAZAPINE [Concomitant]
  4. METHYLPHENIDATE HCL [Concomitant]
  5. LITHIUM CARBONATE [Concomitant]

REACTIONS (3)
  - DELUSIONAL DISORDER, PERSECUTORY TYPE [None]
  - HALLUCINATION, AUDITORY [None]
  - PSYCHOTIC DISORDER [None]
